FAERS Safety Report 5359312-X (Version None)
Quarter: 2007Q2

REPORT INFORMATION
  Report Type: 
  Country: None (occurrence: None)
  Receive Date: 20070615
  Receipt Date: 20070607
  Transmission Date: 20071010
  Serious: Yes (Death, Other)
  Sender: FDA-Public Use
  Company Number: US-PFIZER INC-2006022794

PATIENT
  Sex: Male
  Weight: 117.5 kg

DRUGS (5)
  1. CELEBREX [Suspect]
     Indication: PAIN
     Route: 048
     Dates: start: 20030801, end: 20040904
  2. NEXIUM [Concomitant]
     Route: 048
  3. ZYRTEC [Concomitant]
     Route: 048
     Dates: end: 20040904
  4. NORVASC [Concomitant]
     Route: 048
     Dates: end: 20040904
  5. CASODEX [Concomitant]
     Route: 048
     Dates: end: 20040904

REACTIONS (2)
  - CARDIO-RESPIRATORY ARREST [None]
  - MYOCARDIAL INFARCTION [None]
